FAERS Safety Report 26169265 (Version 2)
Quarter: 2025Q4

REPORT INFORMATION
  Report Type: Report from Study
  Country: CN (occurrence: CN)
  Receive Date: 20251217
  Receipt Date: 20251222
  Transmission Date: 20260117
  Serious: Yes (Other)
  Sender: GILEAD
  Company Number: CN-GILEAD-2025-0740824

PATIENT

DRUGS (1)
  1. TENOFOVIR ALAFENAMIDE [Suspect]
     Active Substance: TENOFOVIR ALAFENAMIDE
     Indication: Chronic hepatitis B
     Dosage: 25 MG, ONCE DAILY, ONE TABLET PER DOSE
     Route: 048

REACTIONS (1)
  - Osteoporosis [Unknown]
